FAERS Safety Report 5112070-6 (Version None)
Quarter: 2006Q3

REPORT INFORMATION
  Report Type: 
  Country: None (occurrence: None)
  Receive Date: 20060920
  Receipt Date: 20060920
  Transmission Date: 20061208
  Serious: Yes (Other)
  Sender: FDA-Public Use
  Company Number: None

PATIENT
  Age: 71 Year
  Sex: Female

DRUGS (1)
  1. LUMIGAN [Suspect]
     Indication: GLAUCOMA
     Dosage: ONE DROP EACH EYE AT NITE
     Route: 031
     Dates: start: 20060909, end: 20060910

REACTIONS (1)
  - VISUAL DISTURBANCE [None]
